FAERS Safety Report 6593638-7 (Version None)
Quarter: 2010Q1

REPORT INFORMATION
  Report Type: 
  Country: None (occurrence: None)
  Receive Date: 20100222
  Receipt Date: 20091005
  Transmission Date: 20100710
  Serious: No
  Sender: FDA-Public Use
  Company Number: US-BRISTOL-MYERS SQUIBB COMPANY-14791933

PATIENT
  Age: 68 Year
  Sex: Female
  Weight: 70 kg

DRUGS (11)
  1. ORENCIA [Suspect]
     Indication: RHEUMATOID ARTHRITIS
     Dosage: 3 VIALS OF 250MG. 2ND INFUSION:04AUG09 ALSO TAKEN LOT # 9A55969
     Route: 042
     Dates: start: 20090708
  2. PREDNISONE [Concomitant]
     Dosage: TAB
     Route: 048
     Dates: start: 20090212
  3. VOLTAREN [Concomitant]
     Dosage: TAB
     Route: 048
     Dates: start: 20090212
  4. ALDACTAZIDE [Concomitant]
     Dosage: 1 DF = 50-50MG
     Route: 048
     Dates: start: 20090212
  5. KEFLEX [Concomitant]
     Indication: INFECTION
     Dosage: CAPS
     Route: 048
     Dates: start: 20090416
  6. DARVOCET [Concomitant]
  7. TRAMADOL HCL [Concomitant]
     Dosage: TABS 1-2 ORAL THREE TIMES DAILY AS NEEDED.
     Route: 048
     Dates: start: 20090212
  8. PREMARIN [Concomitant]
     Dosage: TAB
     Route: 048
     Dates: start: 20081112
  9. PEPCID [Concomitant]
  10. LUMIGAN [Concomitant]
  11. LEFLUNOMIDE [Concomitant]
     Dosage: TABS
     Route: 048
     Dates: start: 20090610

REACTIONS (1)
  - CHEST PAIN [None]
